FAERS Safety Report 4897487-7 (Version None)
Quarter: 2006Q1

REPORT INFORMATION
  Report Type: 
  Country: None (occurrence: None)
  Receive Date: 20060130
  Receipt Date: 20060130
  Transmission Date: 20060701
  Serious: Yes (Hospitalization)
  Sender: FDA-Public Use
  Company Number: None

PATIENT
  Age: 67 Year
  Sex: Female
  Weight: 62.5964 kg

DRUGS (1)
  1. FULVESTRANT 50MG/ML ASTRAZENECA [Suspect]
     Indication: BREAST CANCER METASTATIC
     Dosage: 250 MG EVERY 4 WEEKS IM
     Route: 030
     Dates: start: 20050819, end: 20051118

REACTIONS (5)
  - HEADACHE [None]
  - METASTASES TO BONE [None]
  - NAUSEA [None]
  - PNEUMONIA [None]
  - RETCHING [None]
